FAERS Safety Report 5422873-6 (Version None)
Quarter: 2007Q3

REPORT INFORMATION
  Report Type: 
  Country: None (occurrence: None)
  Receive Date: 20070727
  Receipt Date: 20070413
  Transmission Date: 20080115
  Serious: Yes (Hospitalization, Other)
  Sender: FDA-Public Use
  Company Number: 262737

PATIENT
  Age: 41 Year
  Sex: Female

DRUGS (7)
  1. LEVEMIR [Suspect]
     Indication: INSULIN-REQUIRING TYPE II DIABETES MELLITUS
     Dosage: 25 IU, QD, SUBCUTANEOUS 30 IU, QD, SUBCUTANEOUS
     Route: 058
     Dates: start: 20060101, end: 20070123
  2. LEVEMIR [Suspect]
     Indication: INSULIN-REQUIRING TYPE II DIABETES MELLITUS
     Dosage: 25 IU, QD, SUBCUTANEOUS 30 IU, QD, SUBCUTANEOUS
     Route: 058
     Dates: start: 20070123
  3. PROTONIX /01263201/ (PANTOPRAZOLE) [Concomitant]
  4. LEXAPRO [Concomitant]
  5. LIPITOR [Concomitant]
  6. ALBUTEROL /00139501/ (SALBUTAMOL) [Concomitant]
  7. AVANDIA [Concomitant]

REACTIONS (3)
  - BLOOD GLUCOSE FLUCTUATION [None]
  - BLOOD GLUCOSE INCREASED [None]
  - DIABETIC KETOACIDOSIS [None]
